FAERS Safety Report 5797137-1 (Version None)
Quarter: 2008Q2

REPORT INFORMATION
  Report Type: 
  Country: None (occurrence: None)
  Receive Date: 20080618
  Receipt Date: 20071018
  Transmission Date: 20081010
  Serious: Yes (Other)
  Sender: FDA-Public Use
  Company Number: 200717427US

PATIENT
  Age: 53 Year
  Sex: Male

DRUGS (4)
  1. LANTUS [Suspect]
     Indication: DIABETES MELLITUS
     Dosage: 25-35 U QPM INJ
     Route: 042
  2. AVAPRO [Concomitant]
  3. INSULIN HUMAN (HUMULIN R) [Concomitant]
  4. ASPIRIN [Concomitant]

REACTIONS (1)
  - ANGIOEDEMA [None]
